FAERS Safety Report 23128186 (Version 2)
Quarter: 2023Q4

REPORT INFORMATION
  Report Type: Spontaneous
  Country: US (occurrence: US)
  Receive Date: 20231031
  Receipt Date: 20231114
  Transmission Date: 20240110
  Serious: No
  Sender: FDA-Public Use
  Company Number: US-AMGEN-USASP2023191253

PATIENT
  Age: 78 Year
  Sex: Male

DRUGS (3)
  1. NEULASTA [Suspect]
     Active Substance: PEGFILGRASTIM
     Indication: Prophylaxis
     Dosage: UNK
     Route: 065
  2. AVASTIN [Concomitant]
     Active Substance: BEVACIZUMAB
     Dosage: UNK
     Route: 065
  3. LONSURF [Concomitant]
     Active Substance: TIPIRACIL HYDROCHLORIDE\TRIFLURIDINE
     Dosage: 55 MILLIGRAM, BID (55MG IN THE MORNING AND 55MG AT NIGHT FOR 10 DAY)
     Route: 065

REACTIONS (1)
  - Device malfunction [Unknown]

NARRATIVE: CASE EVENT DATE: 20231025
